FAERS Safety Report 8813379 (Version 1)
Quarter: 2012Q4

REPORT INFORMATION
  Report Type: 
  Country: US (occurrence: US)
  Receive Date: 20120927
  Receipt Date: 20120927
  Transmission Date: 20130627
  Serious: No
  Sender: FDA-Public Use
  Company Number: US-AMGEN-USASP2012052070

PATIENT
  Sex: Female

DRUGS (2)
  1. PROLIA [Suspect]
     Indication: OSTEOPOROSIS
     Dosage: UNK
  2. PROLIA [Suspect]

REACTIONS (3)
  - Low density lipoprotein increased [Not Recovered/Not Resolved]
  - Hepatic steatosis [Unknown]
  - Hypercholesterolaemia [Not Recovered/Not Resolved]
